FAERS Safety Report 8804242 (Version 3)
Quarter: 2013Q1

REPORT INFORMATION
  Report Type: Spontaneous
  Country: US (occurrence: US)
  Receive Date: 20120923
  Receipt Date: 20130212
  Transmission Date: 20140127
  Serious: No
  Sender: FDA-Public Use
  Company Number: US-BIOGENIDEC-2012BI038689

PATIENT
  Age: 58 Year
  Sex: Female

DRUGS (13)
  1. TYSABRI [Suspect]
     Indication: MULTIPLE SCLEROSIS
     Route: 042
     Dates: start: 20120215
  2. AVONEX [Concomitant]
     Indication: MULTIPLE SCLEROSIS
     Route: 030
     Dates: start: 19990702
  3. AVONEX [Concomitant]
     Indication: MULTIPLE SCLEROSIS
     Route: 030
     Dates: start: 20070201
  4. REBIF [Concomitant]
     Indication: MULTIPLE SCLEROSIS
  5. PRILOSEC [Concomitant]
     Route: 048
  6. MELOXICAM [Concomitant]
     Route: 048
  7. ONE-A-DAY WOMEN^S 50 + [Concomitant]
     Route: 048
  8. CITRACAL + D [Concomitant]
     Route: 048
  9. BACLOFEN [Concomitant]
     Route: 048
  10. VESICARE [Concomitant]
     Route: 048
  11. ASPIR-LOW [Concomitant]
     Route: 048
  12. LIPITOR [Concomitant]
     Route: 048
  13. EFFEXOR [Concomitant]
     Route: 048

REACTIONS (22)
  - Rhinitis allergic [Not Recovered/Not Resolved]
  - Orthostatic hypotension [Unknown]
  - Hypertonic bladder [Not Recovered/Not Resolved]
  - Type V hyperlipidaemia [Not Recovered/Not Resolved]
  - Migraine [Recovered/Resolved]
  - Depression [Not Recovered/Not Resolved]
  - Fall [Recovered/Resolved]
  - Traumatic haematoma [Unknown]
  - Arthritis [Not Recovered/Not Resolved]
  - Joint swelling [Not Recovered/Not Resolved]
  - Nephrolithiasis [Not Recovered/Not Resolved]
  - Incontinence [Not Recovered/Not Resolved]
  - Gait disturbance [Not Recovered/Not Resolved]
  - Bone disorder [Not Recovered/Not Resolved]
  - Chondropathy [Not Recovered/Not Resolved]
  - Urinary tract infection [Not Recovered/Not Resolved]
  - Dizziness [Unknown]
  - Chest pain [Not Recovered/Not Resolved]
  - Arthralgia [Not Recovered/Not Resolved]
  - Fungal infection [Not Recovered/Not Resolved]
  - Drug ineffective [Unknown]
  - Fatigue [Not Recovered/Not Resolved]
